FAERS Safety Report 4380776-2 (Version None)
Quarter: 2004Q2

REPORT INFORMATION
  Report Type: 
  Country: None (occurrence: None)
  Receive Date: 20040614
  Receipt Date: 20040601
  Transmission Date: 20050107
  Serious: Yes (Hospitalization)
  Sender: FDA-Public Use
  Company Number: TPA2004A00208

PATIENT
  Age: 70 Year
  Sex: Female
  Weight: 68.0396 kg

DRUGS (8)
  1. ACTOS [Suspect]
     Indication: DIABETES MELLITUS NON-INSULIN-DEPENDENT
     Dosage: SEE IMAGE, PER ORAL
     Route: 048
     Dates: start: 20020703, end: 20030501
  2. ACTOS [Suspect]
     Indication: DIABETES MELLITUS NON-INSULIN-DEPENDENT
     Dosage: SEE IMAGE, PER ORAL
     Route: 048
     Dates: end: 20040216
  3. ACTOS [Suspect]
     Indication: DIABETES MELLITUS NON-INSULIN-DEPENDENT
     Dosage: SEE IMAGE, PER ORAL
     Route: 048
     Dates: start: 20030501
  4. AMARYL [Concomitant]
  5. GLYSET (MIGLITOL) [Concomitant]
  6. LIPITOR [Concomitant]
  7. METOPROLOL (METOPROLOL) [Concomitant]
  8. HYDROCHLOROTHIAZIDE [Concomitant]

REACTIONS (8)
  - BRONCHITIS [None]
  - BRONCHOSPASM [None]
  - CARDIAC FAILURE CONGESTIVE [None]
  - CHRONIC OBSTRUCTIVE AIRWAYS DISEASE EXACERBATED [None]
  - HEADACHE [None]
  - INFLUENZA [None]
  - PNEUMONIA [None]
  - WEIGHT DECREASED [None]
